FAERS Safety Report 9309027 (Version 1)
Quarter: 2013Q2

REPORT INFORMATION
  Report Type: Spontaneous
  Country: US (occurrence: US)
  Receive Date: 20130524
  Receipt Date: 20130524
  Transmission Date: 20140414
  Serious: No
  Sender: FDA-Public Use
  Company Number: US-B.I. PHARMACEUTICALS,INC./RIDGEFIELD-2013-BI-14484BP

PATIENT
  Age: 54 Year
  Sex: Female
  Weight: 65 kg

DRUGS (4)
  1. ATROVENT INHALATION SOLUTION [Suspect]
     Indication: EMPHYSEMA
     Dosage: 68 MCG
     Route: 055
     Dates: start: 201301, end: 20130430
  2. TUDORZA PRESSAIR [Concomitant]
     Indication: CHRONIC OBSTRUCTIVE PULMONARY DISEASE
     Dosage: 800 MCG
     Route: 055
  3. ADVAIR [Concomitant]
     Indication: CHRONIC OBSTRUCTIVE PULMONARY DISEASE
     Dosage: AEROSOL STRENGTH: 500/50 MG; DAILY DOSE: 1000/100 MG
     Route: 055
  4. DALIRESP [Concomitant]
     Indication: CHRONIC OBSTRUCTIVE PULMONARY DISEASE
     Dosage: 500 MCG
     Route: 048

REACTIONS (1)
  - Dyspnoea [Not Recovered/Not Resolved]
